FAERS Safety Report 7451450-0 (Version None)
Quarter: 2011Q2

REPORT INFORMATION
  Report Type: 
  Country: None (occurrence: None)
  Receive Date: 20110502
  Receipt Date: 20110425
  Transmission Date: 20111010
  Serious: Yes (Death, Hospitalization)
  Sender: FDA-Public Use
  Company Number: A0921677A

PATIENT
  Age: 67 Year
  Sex: Male

DRUGS (3)
  1. AVANDIA [Suspect]
     Indication: TYPE 2 DIABETES MELLITUS
     Route: 048
     Dates: start: 20010101, end: 20070101
  2. BLOOD PRESSURE MEDICATION [Concomitant]
     Indication: HYPERTENSION
  3. UNKNOWN DEVICE [Concomitant]
     Indication: SLEEP APNOEA SYNDROME

REACTIONS (7)
  - CARDIAC FAILURE [None]
  - SWELLING [None]
  - DYSPNOEA [None]
  - CARDIAC DISORDER [None]
  - BALANCE DISORDER [None]
  - WEIGHT INCREASED [None]
  - MYOCARDIAL INFARCTION [None]
